FAERS Safety Report 4444120-4 (Version None)
Quarter: 2004Q3

REPORT INFORMATION
  Report Type: 
  Country: None (occurrence: None)
  Receive Date: 20040729
  Receipt Date: 20031201
  Transmission Date: 20050211
  Serious: Yes (Death)
  Sender: FDA-Public Use
  Company Number: USA-2003-0011951

PATIENT
  Age: 63 Year
  Sex: Female
  Weight: 104.3 kg

DRUGS (4)
  1. MORPHINE SULFATE [Suspect]
  2. PHENYTOIN [Suspect]
     Indication: CONVULSION
     Dosage: 100 MG, UNK
  3. PROPOXYPHENE HCL [Suspect]
  4. ACETAMINOPHEN [Suspect]

REACTIONS (1)
  - OVERDOSE [None]
